FAERS Safety Report 7764752-5 (Version None)
Quarter: 2011Q3

REPORT INFORMATION
  Report Type: 
  Country: None (occurrence: None)
  Receive Date: 20110921
  Receipt Date: 20110921
  Transmission Date: 20111222
  Serious: Yes (Other)
  Sender: FDA-Public Use
  Company Number: None

PATIENT
  Sex: Female
  Weight: 102.51 kg

DRUGS (1)
  1. CYMBALTA [Suspect]
     Indication: DEPRESSION
     Dosage: 20MG
     Route: 048
     Dates: start: 20110101, end: 20110901

REACTIONS (5)
  - FEELING ABNORMAL [None]
  - VISION BLURRED [None]
  - CONFUSIONAL STATE [None]
  - HYPOAESTHESIA [None]
  - PARAESTHESIA [None]
